FAERS Safety Report 9274910 (Version 1)
Quarter: 2013Q2

REPORT INFORMATION
  Report Type: Spontaneous
  Country: US (occurrence: None)
  Receive Date: 20130501
  Receipt Date: 20130501
  Transmission Date: 20140414
  Serious: No
  Sender: FDA-Public Use
  Company Number: None

PATIENT
  Age: 66 Year
  Sex: Male
  Weight: 106.4 kg

DRUGS (1)
  1. FERUMOXYTOL [Suspect]
     Indication: ANAEMIA
     Route: 042
     Dates: start: 20130411, end: 20130411

REACTIONS (3)
  - Hypotension [None]
  - Back pain [None]
  - Neck pain [None]
